FAERS Safety Report 13707477 (Version 1)
Quarter: 2017Q2

REPORT INFORMATION
  Report Type: Other
  Country: US (occurrence: US)
  Receive Date: 20170630
  Receipt Date: 20170630
  Transmission Date: 20170830
  Serious: Yes (Disabling)
  Sender: FDA-Public Use
  Company Number: US-ACORDA-ACO_139214_2017

PATIENT
  Sex: Female
  Weight: 81.63 kg

DRUGS (2)
  1. CLONAZEPAM. [Concomitant]
     Active Substance: CLONAZEPAM
     Indication: PRODUCT USED FOR UNKNOWN INDICATION
     Dosage: 0.5 MG, UNK
     Route: 065
  2. AMPYRA [Suspect]
     Active Substance: DALFAMPRIDINE
     Indication: MULTIPLE SCLEROSIS
     Dosage: 10 MG, Q 12 HRS
     Route: 048

REACTIONS (9)
  - Feeling cold [Unknown]
  - Dysphagia [Unknown]
  - Balance disorder [Unknown]
  - Fall [Unknown]
  - Nasal congestion [Unknown]
  - Abasia [Unknown]
  - Muscular weakness [Unknown]
  - Dyspnoea [Unknown]
  - Insomnia [Unknown]
